FAERS Safety Report 4916920-5 (Version None)
Quarter: 2006Q1

REPORT INFORMATION
  Report Type: 
  Country: None (occurrence: None)
  Receive Date: 20060220
  Receipt Date: 20060118
  Transmission Date: 20060701
  Serious: Yes (Death, Hospitalization)
  Sender: FDA-Public Use
  Company Number: IT-ABBOTT-06P-083-0322842-00

PATIENT
  Sex: Male

DRUGS (5)
  1. HUMIRA [Suspect]
     Indication: RHEUMATOID ARTHRITIS
     Route: 058
     Dates: start: 20050505, end: 20051229
  2. PREDNISONE [Concomitant]
     Indication: RHEUMATOID ARTHRITIS
     Dates: start: 20030612
  3. NIMESULIDE [Concomitant]
     Indication: RHEUMATOID ARTHRITIS
     Dates: start: 20040521
  4. CLODY [Concomitant]
     Indication: OSTEOPOROSIS
     Dates: start: 20031009
  5. EUROCAL D3 [Concomitant]
     Indication: OSTEOPOROSIS
     Dates: start: 20050114

REACTIONS (3)
  - ACUTE RESPIRATORY FAILURE [None]
  - CONDITION AGGRAVATED [None]
  - PNEUMOTHORAX [None]
